FAERS Safety Report 19488844 (Version 2)
Quarter: 2022Q3

REPORT INFORMATION
  Report Type: Spontaneous
  Country: US (occurrence: US)
  Receive Date: 20210703
  Receipt Date: 20220911
  Transmission Date: 20221026
  Serious: No
  Sender: FDA-Public Use
  Company Number: US-SA-SAC20210623000111

PATIENT
  Age: 62 Year
  Sex: Female

DRUGS (4)
  1. CAPRELSA [Suspect]
     Active Substance: VANDETANIB
     Indication: Thyroid cancer
     Dosage: 100 MG, QD
     Route: 048
     Dates: start: 20150107
  2. CAPRELSA [Suspect]
     Active Substance: VANDETANIB
     Dosage: 100 MG
     Route: 048
  3. CAPRELSA [Suspect]
     Active Substance: VANDETANIB
     Dosage: 300 MG, Q3D
     Route: 048
  4. FOSAMAX [Concomitant]
     Active Substance: ALENDRONATE SODIUM

REACTIONS (4)
  - Dry eye [Unknown]
  - Vision blurred [Unknown]
  - Alopecia [Unknown]
  - Surgery [Unknown]

NARRATIVE: CASE EVENT DATE: 20170101
